FAERS Safety Report 8246823-2 (Version None)
Quarter: 2012Q1

REPORT INFORMATION
  Report Type: 
  Country: None (occurrence: None)
  Receive Date: 20120330
  Receipt Date: 20120323
  Transmission Date: 20120608
  Serious: No
  Sender: FDA-Public Use
  Company Number: US-PFIZER INC-2012076093

PATIENT
  Sex: Male
  Weight: 99.32 kg

DRUGS (5)
  1. GEODON [Suspect]
     Indication: ANXIETY
     Dosage: 40 MG, DAILY
  2. WELLBUTRIN [Concomitant]
     Indication: DEPRESSION
     Dosage: 300 MG, DAILY
  3. FINASTERIDE [Concomitant]
     Indication: PROSTATIC DISORDER
     Dosage: 5 MG, DAILY
  4. GEODON [Suspect]
     Dosage: 60 MG, UNK
  5. ALFUZOSIN [Concomitant]
     Indication: PROSTATIC DISORDER
     Dosage: 10 MG, DAILY

REACTIONS (5)
  - TREMOR [None]
  - HYPERHIDROSIS [None]
  - BLOOD CREATINE INCREASED [None]
  - MUSCLE TWITCHING [None]
  - DRUG INEFFECTIVE [None]
